FAERS Safety Report 9238375 (Version 1)
Quarter: 2013Q2

REPORT INFORMATION
  Report Type: Spontaneous
  Country: US (occurrence: None)
  Receive Date: 20130417
  Receipt Date: 20130417
  Transmission Date: 20140414
  Serious: Yes (Other)
  Sender: FDA-Public Use
  Company Number: None

PATIENT
  Age: 54 Year
  Sex: Female
  Weight: 72.58 kg

DRUGS (1)
  1. VIVELLE DOT 0.05 MG/DAY NOVARTIS [Suspect]
     Indication: MENOPAUSAL SYMPTOMS
     Dosage: ONE PATCH TWICE A WEEK TRANSDERMAL ?ABOUT 2-3 YEARS
     Route: 062

REACTIONS (2)
  - Hypokinesia [None]
  - Balance disorder [None]
